FAERS Safety Report 17756938 (Version 1)
Quarter: 2020Q2

REPORT INFORMATION
  Report Type: Spontaneous
  Country: IL (occurrence: IL)
  Receive Date: 20200507
  Receipt Date: 20200507
  Transmission Date: 20200714
  Serious: Yes (Hospitalization)
  Sender: FDA-Public Use
  Company Number: IL-B.I. PHARMACEUTICALS,INC./RIDGEFIELD-2020-BI-023224

PATIENT
  Age: 84 Year
  Sex: Female

DRUGS (1)
  1. PRADAXA [Suspect]
     Active Substance: DABIGATRAN ETEXILATE MESYLATE
     Indication: PRODUCT USED FOR UNKNOWN INDICATION
     Route: 065
     Dates: end: 2020

REACTIONS (4)
  - Haemorrhage subcutaneous [Unknown]
  - Creatinine renal clearance decreased [Unknown]
  - Haemarthrosis [Unknown]
  - Factor VIII deficiency [Unknown]

NARRATIVE: CASE EVENT DATE: 2020
